FAERS Safety Report 8479829-9 (Version None)
Quarter: 2012Q2

REPORT INFORMATION
  Report Type: 
  Country: None (occurrence: None)
  Receive Date: 20120618
  Receipt Date: 20120608
  Transmission Date: 20120825
  Serious: Yes (Other)
  Sender: FDA-Public Use
  Company Number: DSA_57869_2012

PATIENT

DRUGS (3)
  1. FLUOROURACIL [Suspect]
     Indication: HEAD AND NECK CANCER
     Dosage: (600-750 MG/M2)
  2. CISPLATIN [Suspect]
     Indication: HEAD AND NECK CANCER
     Dosage: (50-70 MG/M2 INTRAVENOUS BOLUS)
     Route: 040
  3. DOCETAXEL [Suspect]
     Indication: HEAD AND NECK CANCER
     Dosage: (DF)

REACTIONS (1)
  - NEUTROPENIA [None]
